FAERS Safety Report 9562497 (Version 1)
Quarter: 2013Q3

REPORT INFORMATION
  Report Type: Spontaneous
  Country: GB (occurrence: GB)
  Receive Date: 20130927
  Receipt Date: 20130927
  Transmission Date: 20140515
  Serious: Yes (Other)
  Sender: FDA-Public Use
  Company Number: GB-PFIZER INC-2013272076

PATIENT
  Age: 79 Year
  Sex: Male
  Weight: 65 kg

DRUGS (5)
  1. IBUPROFEN [Suspect]
     Indication: PAIN IN EXTREMITY
     Dosage: MORNING AND NIGHT APPLICATION
     Route: 061
     Dates: start: 20130814, end: 20130821
  2. RAMIPRIL [Concomitant]
     Dosage: 2.5 MG, 1X/DAY
  3. CALTRATE + D [Concomitant]
     Dosage: 1000 MG, 2X/DAY, FOR SUCKING
     Route: 048
  4. NEXIUM [Concomitant]
     Dosage: 40 MG, 1X/DAY, EVERY EVENING
  5. CRESTOR [Concomitant]
     Dosage: 1 DF, 1X/DAY, LATE EVENING

REACTIONS (3)
  - Rash [Not Recovered/Not Resolved]
  - Pruritus [Not Recovered/Not Resolved]
  - Pain [Not Recovered/Not Resolved]
